FAERS Safety Report 5104342-6 (Version None)
Quarter: 2006Q3

REPORT INFORMATION
  Report Type: 
  Country: None (occurrence: None)
  Receive Date: 20060912
  Receipt Date: 20060912
  Transmission Date: 20061208
  Serious: Yes (Other)
  Sender: FDA-Public Use
  Company Number: None

PATIENT
  Age: 33 Year
  Sex: Male
  Weight: 92.9874 kg

DRUGS (1)
  1. KLONOPIN [Suspect]
     Indication: ANXIETY
     Dosage: 0.5  3X A DAY PO
     Route: 048

REACTIONS (4)
  - DIZZINESS [None]
  - HEADACHE [None]
  - PHARYNGOLARYNGEAL PAIN [None]
  - THERAPEUTIC RESPONSE UNEXPECTED WITH DRUG SUBSTITUTION [None]
